FAERS Safety Report 19082872 (Version 1)
Quarter: 2021Q2

REPORT INFORMATION
  Report Type: Report from Study
  Country: GB (occurrence: GB)
  Receive Date: 20210401
  Receipt Date: 20210401
  Transmission Date: 20210717
  Serious: Yes (Other)
  Sender: FDA-Public Use
  Company Number: NVSC2021GB064600

PATIENT
  Sex: Female

DRUGS (1)
  1. HYRIMOZ [Suspect]
     Active Substance: ADALIMUMAB-ADAZ
     Indication: PSORIATIC ARTHROPATHY
     Dosage: UNK UNK, Q2W (40MG/0.8ML, AS DIRECTED)
     Route: 065

REACTIONS (7)
  - Back pain [Unknown]
  - Limb discomfort [Unknown]
  - Fatigue [Unknown]
  - Pain in extremity [Unknown]
  - Psoriasis [Unknown]
  - Migraine [Unknown]
  - Lupus-like syndrome [Unknown]
